FAERS Safety Report 10239192 (Version 2)
Quarter: 2015Q1

REPORT INFORMATION
  Report Type: Spontaneous
  Country: US (occurrence: US)
  Receive Date: 20140616
  Receipt Date: 20150120
  Transmission Date: 20150720
  Serious: Yes (Hospitalization, Other)
  Sender: FDA-Public Use
  Company Number: US-GLAXOSMITHKLINE-A1077135A

PATIENT
  Sex: Male

DRUGS (3)
  1. VOTRIENT [Suspect]
     Active Substance: PAZOPANIB HYDROCHLORIDE
     Dosage: 400 MG, 1D
     Route: 048
     Dates: start: 201309
  2. OXYCODONE [Concomitant]
     Active Substance: OXYCODONE
  3. VOTRIENT [Suspect]
     Active Substance: PAZOPANIB HYDROCHLORIDE
     Indication: RENAL CANCER
     Dosage: 400 MG, 1D
     Route: 065

REACTIONS (3)
  - Hospitalisation [Unknown]
  - Haemorrhage subcutaneous [Unknown]
  - Increased tendency to bruise [Unknown]
